FAERS Safety Report 6249504-X (Version None)
Quarter: 2009Q2

REPORT INFORMATION
  Report Type: 
  Country: None (occurrence: None)
  Receive Date: 20090629
  Receipt Date: 20090623
  Transmission Date: 20091009
  Serious: Yes (Death, Other)
  Sender: FDA-Public Use
  Company Number: B0578449A

PATIENT
  Sex: Female
  Weight: 60 kg

DRUGS (2)
  1. LAPATINIB [Suspect]
     Dosage: 1250MG PER DAY
     Route: 048
     Dates: start: 20081107, end: 20090521
  2. CAPECITABINE [Suspect]
     Dosage: 2500MG PER DAY
     Route: 048
     Dates: start: 20081107, end: 20090521

REACTIONS (16)
  - BACTERIAL INFECTION [None]
  - BLOOD BILIRUBIN INCREASED [None]
  - DISEASE PROGRESSION [None]
  - DYSPNOEA [None]
  - HEPATIC FUNCTION ABNORMAL [None]
  - INTERSTITIAL LUNG DISEASE [None]
  - LUNG INFECTION [None]
  - NEUTROPHIL COUNT INCREASED [None]
  - PLEURAL EFFUSION [None]
  - PNEUMONIA [None]
  - PNEUMONITIS [None]
  - PRODUCTIVE COUGH [None]
  - RESPIRATORY FAILURE [None]
  - TACHYCARDIA [None]
  - TRANSAMINASES INCREASED [None]
  - WHITE BLOOD CELL COUNT INCREASED [None]
